FAERS Safety Report 6668091-5 (Version None)
Quarter: 2010Q2

REPORT INFORMATION
  Report Type: 
  Country: None (occurrence: None)
  Receive Date: 20100406
  Receipt Date: 20100331
  Transmission Date: 20101027
  Serious: Yes (Other)
  Sender: FDA-Public Use
  Company Number: US-ASTRAZENECA-2009SE20139

PATIENT
  Sex: Female

DRUGS (2)
  1. SEROQUEL [Suspect]
     Route: 048
     Dates: start: 20061129
  2. WELLBUT XL [Concomitant]
     Dates: start: 20061129

REACTIONS (3)
  - DIABETES MELLITUS [None]
  - DIABETIC NEPHROPATHY [None]
  - DIABETIC VASCULAR DISORDER [None]
